FAERS Safety Report 26162240 (Version 1)
Quarter: 2025Q4

REPORT INFORMATION
  Report Type: Report from Study
  Country: AU (occurrence: None)
  Receive Date: 20251216
  Receipt Date: 20251216
  Transmission Date: 20260118
  Serious: Yes (Other)
  Sender: UCB
  Company Number: AU-UCBSA-2025039671

PATIENT
  Age: 24 Year
  Weight: 71 kg

DRUGS (4)
  1. FENFLURAMINE HYDROCHLORIDE [Suspect]
     Active Substance: FENFLURAMINE HYDROCHLORIDE
     Indication: Severe myoclonic epilepsy of infancy
     Dosage: 0.5 MILLILITER, 2X/DAY (BID)
     Route: 061
  2. FENFLURAMINE HYDROCHLORIDE [Suspect]
     Active Substance: FENFLURAMINE HYDROCHLORIDE
     Dosage: 1ML MANE AND 1.5ML NOCTE BID
  3. FENFLURAMINE HYDROCHLORIDE [Suspect]
     Active Substance: FENFLURAMINE HYDROCHLORIDE
     Dosage: 2ML MANE AND 2.5ML NOCTE BID
     Route: 061
  4. SERTRALINE [Concomitant]
     Active Substance: SERTRALINE HYDROCHLORIDE
     Indication: Product used for unknown indication
     Dosage: 25 MILLIGRAM, ONCE DAILY (QD)
     Route: 061

REACTIONS (3)
  - Seizure [Recovering/Resolving]
  - Intercepted product prescribing error [Unknown]
  - Product use issue [Unknown]
